FAERS Safety Report 4283649-9 (Version None)
Quarter: 2004Q1

REPORT INFORMATION
  Report Type: 
  Country: None (occurrence: None)
  Receive Date: 20040129
  Receipt Date: 20040129
  Transmission Date: 20041129
  Serious: Yes (Hospitalization)
  Sender: FDA-Public Use
  Company Number: None

PATIENT
  Age: 88 Year
  Sex: Male
  Weight: 81.7 kg

DRUGS (20)
  1. ASPIRIN [Suspect]
     Indication: AORTIC STENOSIS
     Dosage: 81 MG PO QD
     Route: 048
  2. ASPIRIN [Suspect]
     Indication: ATRIAL FLUTTER
     Dosage: 81 MG PO QD
     Route: 048
  3. PLAVIX [Suspect]
     Indication: AORTIC STENOSIS
     Dosage: 75MG PO QOD
     Route: 048
  4. PREDNISONE [Suspect]
     Indication: RESPIRATORY DISORDER
     Dosage: 30 MG PO QD
     Route: 048
     Dates: start: 20030906, end: 20030926
  5. VIT C [Concomitant]
  6. FLOMAX [Concomitant]
  7. HYOSCYAMINE [Concomitant]
  8. ZANTAC [Concomitant]
  9. SINGULAIR [Concomitant]
  10. LASIX [Concomitant]
  11. DIOVAN [Concomitant]
  12. XOPENEX [Concomitant]
  13. ATROVENT [Concomitant]
  14. PULMICORT [Concomitant]
  15. ALBUTEROL [Concomitant]
  16. GLUCOPHAGE [Concomitant]
  17. NASACORT [Concomitant]
  18. CLARITIN-D [Concomitant]
  19. VIT B [Concomitant]
  20. ELAVIL [Concomitant]

REACTIONS (6)
  - ABDOMINAL DISTENSION [None]
  - ABDOMINAL PAIN [None]
  - FAECES DISCOLOURED [None]
  - FLATULENCE [None]
  - MELAENA [None]
  - ORTHOSTATIC HYPOTENSION [None]
